FAERS Safety Report 14043017 (Version 2)
Quarter: 2017Q4

REPORT INFORMATION
  Report Type: Report from Study
  Country: US (occurrence: US)
  Receive Date: 20171004
  Receipt Date: 20171027
  Transmission Date: 20180321
  Serious: No
  Sender: FDA-Public Use
  Company Number: PHEH2017US031915

PATIENT
  Sex: Male
  Weight: 137 kg

DRUGS (1)
  1. SIGNIFOR LAR [Suspect]
     Active Substance: PASIREOTIDE
     Indication: ACROMEGALY
     Dosage: 20 MG, QMO
     Route: 030
     Dates: start: 20171012

REACTIONS (2)
  - Blood glucose decreased [Recovered/Resolved]
  - Inappropriate schedule of drug administration [Unknown]
